FAERS Safety Report 10225534 (Version 1)
Quarter: 2014Q2

REPORT INFORMATION
  Report Type: Spontaneous
  Country: US (occurrence: US)
  Receive Date: 20140609
  Receipt Date: 20140609
  Transmission Date: 20141212
  Serious: Yes (Other)
  Sender: FDA-Public Use
  Company Number: US-ASTELLAS-2014US000592

PATIENT
  Sex: Female

DRUGS (2)
  1. PROGRAF [Suspect]
     Indication: LUNG TRANSPLANT
     Route: 048
     Dates: start: 2004
  2. TACROLIMUS SANDOZ [Suspect]
     Indication: LUNG TRANSPLANT
     Route: 065

REACTIONS (4)
  - Off label use [Unknown]
  - Renal failure acute [Unknown]
  - Hypertension [Unknown]
  - Pericardial effusion [Unknown]
